FAERS Safety Report 10085793 (Version 1)
Quarter: 2014Q2

REPORT INFORMATION
  Report Type: Spontaneous
  Country: GB (occurrence: None)
  Receive Date: 20140416
  Receipt Date: 20140416
  Transmission Date: 20141212
  Serious: Yes (Other)
  Sender: FDA-Public Use
  Company Number: 2014-001033

PATIENT
  Age: 49 Year
  Sex: Female
  Weight: 74 kg

DRUGS (6)
  1. SARAFEM [Suspect]
     Dates: start: 20140304
  2. BECONASE [Concomitant]
  3. CITALOPRAM [Concomitant]
  4. FLUTICASONE FOROATE [Concomitant]
  5. NAPROXEN [Concomitant]
  6. OMEPRAZOLE [Concomitant]

REACTIONS (1)
  - Muscle twitching [None]
